FAERS Safety Report 4999773-9 (Version None)
Quarter: 2006Q2

REPORT INFORMATION
  Report Type: 
  Country: None (occurrence: None)
  Receive Date: 20060511
  Receipt Date: 20060504
  Transmission Date: 20061013
  Serious: Yes (Other)
  Sender: FDA-Public Use
  Company Number: IE-GLAXOSMITHKLINE-B0423313A

PATIENT
  Age: 68 Year
  Sex: Male

DRUGS (14)
  1. AVANDIA [Suspect]
     Dosage: 8MG PER DAY
     Route: 048
     Dates: start: 20060110, end: 20060309
  2. PROSTAP [Concomitant]
     Route: 065
  3. ACETAMINOPHEN [Concomitant]
     Route: 065
  4. LISINOPRIL [Concomitant]
     Route: 065
  5. NEURONTIN [Concomitant]
     Route: 065
  6. FRUSEMIDE [Concomitant]
     Route: 065
  7. DIAMICRON [Concomitant]
     Route: 065
  8. NUSEALS ASPIRIN [Concomitant]
     Route: 065
  9. ADIZEM SR [Concomitant]
     Dosage: 120MG UNKNOWN
     Route: 065
  10. OMACOR [Concomitant]
     Route: 065
  11. GLUCOPHAGE [Concomitant]
     Route: 065
  12. BISOPROLOL FUMARATE [Concomitant]
     Route: 065
  13. DETRUSITOL [Concomitant]
     Route: 065
  14. ZYDOL [Concomitant]
     Route: 065

REACTIONS (1)
  - MUSCULAR WEAKNESS [None]
